FAERS Safety Report 20130131 (Version 2)
Quarter: 2021Q4

REPORT INFORMATION
  Report Type: Spontaneous
  Country: ES (occurrence: ES)
  Receive Date: 20211130
  Receipt Date: 20211214
  Transmission Date: 20220303
  Serious: Yes (Other)
  Sender: FDA-Public Use
  Company Number: ES-GRUNENTHAL-2021-270491

PATIENT
  Age: 80 Year
  Sex: Female

DRUGS (3)
  1. FENTANYL [Suspect]
     Active Substance: FENTANYL
     Indication: Product used for unknown indication
     Dosage: 50 MICROGRAM, Q3D (50 MICROGRAM, EVERY 3 DAYS)
     Route: 062
  2. PALEXIA [Suspect]
     Active Substance: TAPENTADOL HYDROCHLORIDE
     Indication: Product used for unknown indication
     Dosage: 200 MILLIGRAM, QD (100 MILLIGRAM, 2/DAY)
     Route: 048
  3. PALEXIA [Suspect]
     Active Substance: TAPENTADOL HYDROCHLORIDE
     Dosage: 50 MILLIGRAM, BID (50 MILLIGRAM, EVERY 12 HRS)
     Route: 048

REACTIONS (6)
  - Syncope [Recovered/Resolved]
  - Urinary tract infection [Recovered/Resolved]
  - Cognitive disorder [Recovered/Resolved]
  - Malaise [Recovered/Resolved]
  - Nausea [Recovered/Resolved]
  - Diarrhoea [Recovered/Resolved]

NARRATIVE: CASE EVENT DATE: 20210824
